FAERS Safety Report 18099361 (Version 1)
Quarter: 2020Q3

REPORT INFORMATION
  Report Type: Spontaneous
  Country: AU (occurrence: AU)
  Receive Date: 20200731
  Receipt Date: 20200731
  Transmission Date: 20201103
  Serious: Yes (Other)
  Sender: FDA-Public Use
  Company Number: AU-PFIZER INC-2020291260

PATIENT
  Sex: Female

DRUGS (1)
  1. VORICONAZOLE. [Suspect]
     Active Substance: VORICONAZOLE
     Indication: VULVOVAGINAL CANDIDIASIS
     Dosage: UNK

REACTIONS (2)
  - Hallucination [Unknown]
  - Seizure [Unknown]
